FAERS Safety Report 18247850 (Version 2)
Quarter: 2020Q4

REPORT INFORMATION
  Report Type: Report from Study
  Country: CA (occurrence: CA)
  Receive Date: 20200909
  Receipt Date: 20201208
  Transmission Date: 20210113
  Serious: Yes (Hospitalization)
  Sender: FDA-Public Use
  Company Number: CA-JNJFOC-20190816725

PATIENT
  Age: 16 Year
  Sex: Male
  Weight: 38 kg

DRUGS (1)
  1. REMICADE [Suspect]
     Active Substance: INFLIXIMAB
     Indication: CROHN^S DISEASE
     Dosage: STRENGTH = 100 MG, ALSO REPORTED AS 570 MG
     Route: 042

REACTIONS (3)
  - Pancreatitis [Unknown]
  - Abdominal pain [Unknown]
  - Weight gain poor [Unknown]

NARRATIVE: CASE EVENT DATE: 20190726
